FAERS Safety Report 21052491 (Version 7)
Quarter: 2022Q4

REPORT INFORMATION
  Report Type: Spontaneous
  Country: US (occurrence: US)
  Receive Date: 20220707
  Receipt Date: 20221117
  Transmission Date: 20230112
  Serious: No
  Sender: FDA-Public Use
  Company Number: US-GLAXOSMITHKLINE-US2022AMR102589

PATIENT
  Sex: Female
  Weight: 122 kg

DRUGS (1)
  1. ZEJULA [Suspect]
     Active Substance: NIRAPARIB
     Indication: Ovarian cancer
     Dosage: 200 MG, QD
     Dates: start: 202206

REACTIONS (6)
  - Fatigue [Recovering/Resolving]
  - Decreased appetite [Not Recovered/Not Resolved]
  - Insomnia [Recovering/Resolving]
  - Blood magnesium decreased [Unknown]
  - Vitamin D decreased [Unknown]
  - Blood calcium decreased [Unknown]
